FAERS Safety Report 5325957-6 (Version None)
Quarter: 2007Q2

REPORT INFORMATION
  Report Type: 
  Country: None (occurrence: None)
  Receive Date: 20070516
  Receipt Date: 20070413
  Transmission Date: 20071010
  Serious: No
  Sender: FDA-Public Use
  Company Number: A0647209A

PATIENT
  Age: 33 Year
  Sex: Female

DRUGS (5)
  1. EPZICOM [Suspect]
     Indication: HIV INFECTION
     Route: 048
     Dates: start: 20070320
  2. CONTRAST DYE [Suspect]
     Indication: NUCLEAR MAGNETIC RESONANCE IMAGING
     Dates: start: 20070410
  3. NORVIR [Concomitant]
  4. UNKNOWN MEDICATION [Concomitant]
  5. TENOFOVIR [Concomitant]

REACTIONS (2)
  - PRURITUS [None]
  - RASH [None]
